FAERS Safety Report 9726336 (Version 1)
Quarter: 2013Q4

REPORT INFORMATION
  Report Type: Spontaneous
  Country: US (occurrence: US)
  Receive Date: 20131203
  Receipt Date: 20131203
  Transmission Date: 20140711
  Serious: Yes (Disabling)
  Sender: FDA-Public Use
  Company Number: US-PFIZER INC-2013340689

PATIENT
  Age: 62 Year
  Sex: Female
  Weight: 87.53 kg

DRUGS (5)
  1. PRAVASTATIN SODIUM [Suspect]
     Indication: BLOOD CHOLESTEROL ABNORMAL
     Dosage: 40 MG, DAILY
  2. DETROL LA [Suspect]
     Indication: BLADDER DISORDER
     Dosage: 2 MG, TWO TIMES A DAY
  3. DETROL LA [Suspect]
     Dosage: 4 MG, DAILY
     Dates: end: 201311
  4. LEVOTHYROXINE [Concomitant]
     Indication: THYROID DISORDER
     Dosage: 125 UG, DAILY
  5. TRAMADOL [Concomitant]
     Indication: PAIN
     Dosage: UNK, AS NEEDED

REACTIONS (5)
  - Accident [Unknown]
  - Dizziness [Recovered/Resolved]
  - Liver disorder [Recovered/Resolved]
  - Heart rate decreased [Unknown]
  - Therapeutic response unexpected [Unknown]
